FAERS Safety Report 8473845-9 (Version None)
Quarter: 2012Q2

REPORT INFORMATION
  Report Type: 
  Country: None (occurrence: None)
  Receive Date: 20120621
  Receipt Date: 20120606
  Transmission Date: 20120825
  Serious: Yes (Death)
  Sender: FDA-Public Use
  Company Number: US-2012-10716

PATIENT
  Age: 2 Month

DRUGS (10)
  1. LORAZEPAM [Concomitant]
  2. ACYCLOVIR [Concomitant]
  3. FLUDARABINE PHOSPHATE [Suspect]
     Indication: BONE MARROW CONDITIONING REGIMEN
     Dosage: SEE IMAGE
     Route: 051
  4. METHOTREXATE SODIUM [Concomitant]
  5. IMMUNOGLOBIN G HUMAN (IMMUNOGLOBIN G HUMAN) [Concomitant]
  6. BUSULFAN [Suspect]
     Indication: BONE MARROW CONDITIONING REGIMEN
     Dosage: 16 DOSES, EVERY 6 HOURS, INTRAVENOUS
     Route: 042
  7. ALEMTUZUMAB (ALEMTUZUMAB) [Suspect]
     Indication: BONE MARROW CONDITIONING REGIMEN
     Dosage: 0.5 MG/KG, DAILY DOSE, PARENTERAL
     Route: 051
  8. CYCLOSPORINE [Concomitant]
  9. FLUNCONAZOLE (FLUNCONAZOLE) [Concomitant]
  10. N-ACETYLCYSTEINE (N-ACETYLCYSETEINE) [Concomitant]

REACTIONS (1)
  - PULMONARY HYPERTENSION [None]
